FAERS Safety Report 19943273 (Version 1)
Quarter: 2021Q4

REPORT INFORMATION
  Report Type: Spontaneous
  Country: US (occurrence: US)
  Receive Date: 20211011
  Receipt Date: 20211011
  Transmission Date: 20220303
  Serious: No
  Sender: FDA-Public Use
  Company Number: US-INTRA-CELLULAR THERAPIES, INC.-2021ICT00324

PATIENT
  Age: 33 Year
  Sex: Male

DRUGS (4)
  1. CAPLYTA [Suspect]
     Active Substance: LUMATEPERONE
     Indication: Schizophrenia
     Dosage: 42 MG, 1X/DAY
     Route: 048
     Dates: start: 20201014
  2. HALDOL [Concomitant]
     Active Substance: HALOPERIDOL
     Dosage: 100 MG, EVERY 3 WEEKS
  3. DEPAKOTE [Concomitant]
     Active Substance: DIVALPROEX SODIUM
     Dosage: 500 MG, 1X/DAY
  4. BENADRYL [Concomitant]
     Active Substance: DIPHENHYDRAMINE HYDROCHLORIDE
     Dosage: 25 MG, 1X/DAY

REACTIONS (1)
  - Depressed mood [Not Recovered/Not Resolved]

NARRATIVE: CASE EVENT DATE: 20210501
